FAERS Safety Report 21504903 (Version 3)
Quarter: 2022Q4

REPORT INFORMATION
  Report Type: Spontaneous
  Country: DE (occurrence: DE)
  Receive Date: 20221025
  Receipt Date: 20221109
  Transmission Date: 20230113
  Serious: Yes (Hospitalization, Other)
  Sender: FDA-Public Use
  Company Number: DE-GILEAD-2022-0602414

PATIENT
  Age: 66 Year
  Sex: Male

DRUGS (2)
  1. VEKLURY [Suspect]
     Active Substance: REMDESIVIR
     Indication: COVID-19
     Dosage: 200 MG, DAY 1
     Route: 042
     Dates: start: 20220505, end: 20220505
  2. VEKLURY [Suspect]
     Active Substance: REMDESIVIR
     Dosage: 100 MG, FROM DAY 2 TO DAY 5
     Route: 042
     Dates: start: 20220506, end: 20220509

REACTIONS (11)
  - Pyrexia [Unknown]
  - Asthenia [Unknown]
  - Dependence on oxygen therapy [Recovered/Resolved]
  - Condition aggravated [Unknown]
  - Cough [Unknown]
  - Rhinitis [Unknown]
  - Anosmia [Unknown]
  - Ageusia [Unknown]
  - Headache [Unknown]
  - Pain in extremity [Unknown]
  - Myalgia [Unknown]

NARRATIVE: CASE EVENT DATE: 20220505
